FAERS Safety Report 12182411 (Version 2)
Quarter: 2016Q1

REPORT INFORMATION
  Report Type: Report from Study
  Country: US (occurrence: US)
  Receive Date: 20160316
  Receipt Date: 20160321
  Transmission Date: 20160526
  Serious: Yes (Life-Threatening, Hospitalization, Disabling, Other)
  Sender: FDA-Public Use
  Company Number: US-ASTRAZENECA-2016SE27783

PATIENT
  Sex: Female
  Weight: 44.9 kg

DRUGS (19)
  1. LISINOPRIL. [Suspect]
     Active Substance: LISINOPRIL
     Indication: CARDIAC DISORDER
     Route: 048
  2. AMBIEN [Concomitant]
     Active Substance: ZOLPIDEM TARTRATE
     Indication: INSOMNIA
     Route: 048
  3. OMEPRAZOLE. [Suspect]
     Active Substance: OMEPRAZOLE
     Indication: GASTROOESOPHAGEAL REFLUX DISEASE
     Route: 048
  4. OXYGEN. [Concomitant]
     Active Substance: OXYGEN
     Indication: CHRONIC OBSTRUCTIVE PULMONARY DISEASE
     Route: 055
  5. XANAX [Concomitant]
     Active Substance: ALPRAZOLAM
     Indication: ANXIETY
     Route: 048
  6. SYMBICORT [Suspect]
     Active Substance: BUDESONIDE\FORMOTEROL FUMARATE DIHYDRATE
     Indication: ASTHMA
     Dosage: 160/4.5 MCG 2 PUFFS 2 TIMES DAILY
     Route: 055
     Dates: start: 2006
  7. ORAL CONTRACEPTIVE NOS [Suspect]
     Active Substance: UNSPECIFIED INGREDIENT
     Dosage: PILLS
     Route: 065
  8. OXYGEN. [Concomitant]
     Active Substance: OXYGEN
     Indication: CHRONIC OBSTRUCTIVE PULMONARY DISEASE
     Dosage: AT NIGHT
     Route: 055
  9. SYMBICORT [Suspect]
     Active Substance: BUDESONIDE\FORMOTEROL FUMARATE DIHYDRATE
     Indication: CHRONIC OBSTRUCTIVE PULMONARY DISEASE
     Dosage: 160/4.5 MCG 2 PUFFS 2 TIMES DAILY
     Route: 055
     Dates: start: 2006
  10. OXYCONTIN [Concomitant]
     Active Substance: OXYCODONE HYDROCHLORIDE
     Indication: PAIN
     Route: 048
  11. CLONAZEPAM. [Concomitant]
     Active Substance: CLONAZEPAM
     Indication: INSOMNIA
     Route: 048
  12. TUDORZA PRESSAIR [Suspect]
     Active Substance: ACLIDINIUM BROMIDE
     Indication: CHRONIC OBSTRUCTIVE PULMONARY DISEASE
     Dosage: 400 UG 1 PUFF 2 TIMES DAILY
     Route: 055
     Dates: start: 201512
  13. TUDORZA PRESSAIR [Suspect]
     Active Substance: ACLIDINIUM BROMIDE
     Indication: ASTHMA
     Dosage: 400 UG 1 PUFF 2 TIMES DAILY
     Route: 055
     Dates: start: 201512
  14. ESTROGEN [Suspect]
     Active Substance: ESTRONE\SUS SCROFA OVARY
     Route: 065
  15. PROAIR HFA [Concomitant]
     Active Substance: ALBUTEROL SULFATE
     Indication: ASTHMA
     Dosage: AS REQUIRED
     Route: 055
  16. OXYGEN. [Concomitant]
     Active Substance: OXYGEN
     Indication: ASTHMA
     Dosage: AT NIGHT
     Route: 055
  17. OXYGEN. [Concomitant]
     Active Substance: OXYGEN
     Indication: ASTHMA
     Route: 055
  18. PROAIR HFA [Concomitant]
     Active Substance: ALBUTEROL SULFATE
     Indication: CHRONIC OBSTRUCTIVE PULMONARY DISEASE
     Dosage: AS REQUIRED
     Route: 055
  19. CALCIUM WITH VITAMIN D [Concomitant]
     Active Substance: CALCIUM\VITAMIN D
     Indication: OSTEOPOROSIS
     Route: 048

REACTIONS (38)
  - Ovarian cancer [Unknown]
  - Thrombosis [Unknown]
  - Anxiety [Unknown]
  - Gastrooesophageal reflux disease [Unknown]
  - Streptococcal infection [Unknown]
  - Syncope [Unknown]
  - Total lung capacity abnormal [Unknown]
  - Ulcer [Unknown]
  - Chronic kidney disease [Unknown]
  - Cardiac disorder [Unknown]
  - Pneumonia [Unknown]
  - Fall [Unknown]
  - Hepatic enzyme increased [Unknown]
  - Parathyroid disorder [Unknown]
  - Osteopenia [Unknown]
  - Influenza [Unknown]
  - Uterine cancer [Unknown]
  - Lung disorder [Unknown]
  - Rheumatic fever [Unknown]
  - Scarlet fever [Unknown]
  - Chest pain [Unknown]
  - Cholelithiasis [Unknown]
  - Tympanic membrane perforation [Unknown]
  - Osteoarthritis [Unknown]
  - Dyspnoea [Unknown]
  - Palpitations [Unknown]
  - Breast cancer stage IV [Unknown]
  - Suicide attempt [Unknown]
  - Skin cancer [Unknown]
  - Insomnia [Unknown]
  - Post-traumatic stress disorder [Unknown]
  - Product quality issue [Unknown]
  - Scoliosis [Unknown]
  - Dizziness [Unknown]
  - Pain [Unknown]
  - Heart valve incompetence [Unknown]
  - Gait disturbance [Unknown]
  - Migraine [Unknown]
